FAERS Safety Report 10596531 (Version 3)
Quarter: 2014Q4

REPORT INFORMATION
  Report Type: Spontaneous
  Country: BR (occurrence: BR)
  Receive Date: 20141120
  Receipt Date: 20141203
  Transmission Date: 20150529
  Serious: Yes (Other)
  Sender: FDA-Public Use
  Company Number: BR-BAYER-2014-091143

PATIENT
  Sex: Female
  Weight: 64 kg

DRUGS (1)
  1. QLAIRA [Suspect]
     Active Substance: DIENOGEST\ESTRADIOL VALERATE
     Indication: CONTRACEPTION
     Dosage: 1 DF, QD
     Route: 048
     Dates: start: 201308, end: 201406

REACTIONS (8)
  - Blood glucose increased [Recovering/Resolving]
  - Pigmentation disorder [Recovering/Resolving]
  - Malignant melanoma [Recovering/Resolving]
  - Blood cholesterol increased [Recovering/Resolving]
  - Hypertension [Recovering/Resolving]
  - Vomiting [Recovering/Resolving]
  - Suffocation feeling [Recovered/Resolved]
  - Headache [Recovering/Resolving]
